FAERS Safety Report 4352187-7 (Version None)
Quarter: 2004Q2

REPORT INFORMATION
  Report Type: 
  Country: None (occurrence: None)
  Receive Date: 20040428
  Receipt Date: 20040413
  Transmission Date: 20050107
  Serious: Yes (Other)
  Sender: FDA-Public Use
  Company Number: FR_040203568

PATIENT
  Age: 65 Year
  Sex: Female

DRUGS (3)
  1. EVISTA [Suspect]
     Indication: OSTEOPOROSIS
     Dosage: 60MG/1 DAY
     Dates: start: 20030201, end: 20040401
  2. TANAKAN (GINKGO BILOBA EXTRACT) [Concomitant]
  3. VEINAMITOL (TROXERUTIN) [Concomitant]

REACTIONS (2)
  - CHRONIC LYMPHOCYTIC LEUKAEMIA [None]
  - CYTOLYTIC HEPATITIS [None]
